FAERS Safety Report 9252805 (Version 1)
Quarter: 2013Q2

REPORT INFORMATION
  Report Type: Spontaneous
  Country: US (occurrence: US)
  Receive Date: 20130424
  Receipt Date: 20130424
  Transmission Date: 20140414
  Serious: No
  Sender: FDA-Public Use
  Company Number: US-BAUSCH-BL-2012-001682

PATIENT
  Age: 53 Year
  Sex: Female

DRUGS (2)
  1. LOTEMAX (LOTEPREDNOL ETABONATE OPHTHALMIC SUSPENSION 0.5%) [Suspect]
     Indication: INFLAMMATION
     Dosage: 1 DROP IN LEFT EYE, THREE TIMES PER DAY
     Route: 047
     Dates: start: 20121101, end: 20121105
  2. LOTEMAX (LOTEPREDNOL ETABONATE OPHTHALMIC SUSPENSION 0.5%) [Suspect]
     Dosage: 1 DROP IN LEFT EYE, TWO TIMES PER DAY
     Route: 047
     Dates: start: 20121106

REACTIONS (2)
  - Migraine with aura [Recovered/Resolved]
  - Headache [Not Recovered/Not Resolved]
